FAERS Safety Report 11209768 (Version 1)
Quarter: 2015Q2

REPORT INFORMATION
  Report Type: Spontaneous
  Country: US (occurrence: US)
  Receive Date: 20150622
  Receipt Date: 20150622
  Transmission Date: 20150821
  Serious: Yes (Hospitalization)
  Sender: FDA-Public Use
  Company Number: US-MPIJNJ-2012-01749

PATIENT
  Age: 75 Year
  Sex: Female
  Weight: 74.69 kg

DRUGS (1)
  1. VELCADE [Suspect]
     Active Substance: BORTEZOMIB
     Indication: PLASMA CELL MYELOMA
     Dosage: 2.38 MG, CYCLIC
     Route: 042
     Dates: start: 20111109, end: 20111216

REACTIONS (4)
  - Dehydration [Unknown]
  - Dizziness [Unknown]
  - Orthostatic hypotension [Unknown]
  - Urinary tract infection [Unknown]

NARRATIVE: CASE EVENT DATE: 20111224
